FAERS Safety Report 23510778 (Version 1)
Quarter: 2024Q1

REPORT INFORMATION
  Report Type: Spontaneous
  Country: CN (occurrence: CN)
  Receive Date: 20240212
  Receipt Date: 20240212
  Transmission Date: 20240409
  Serious: Yes (Hospitalization, Disabling)
  Sender: FDA-Public Use
  Company Number: CN-ABBVIE-5625283

PATIENT
  Age: 83 Year
  Sex: Female
  Weight: 48 kg

DRUGS (5)
  1. VENETOCLAX [Suspect]
     Active Substance: VENETOCLAX
     Indication: Chronic myelomonocytic leukaemia
     Dosage: 400 MILLIGRAM
     Route: 048
     Dates: start: 20240119, end: 20240130
  2. VENETOCLAX [Suspect]
     Active Substance: VENETOCLAX
     Indication: Chronic myelomonocytic leukaemia
     Dosage: 200 MILLIGRAM
     Route: 048
     Dates: start: 20240118, end: 20240118
  3. VENETOCLAX [Suspect]
     Active Substance: VENETOCLAX
     Indication: Chronic myelomonocytic leukaemia
     Dosage: 100 MILLIGRAM
     Route: 048
     Dates: start: 20240117, end: 20240117
  4. AZACITIDINE [Suspect]
     Active Substance: AZACITIDINE
     Indication: Chronic myelomonocytic leukaemia
     Dosage: 100 MILLIGRAM
     Route: 065
     Dates: start: 20240117, end: 20240123
  5. STERILE WATER [Concomitant]
     Active Substance: WATER
     Indication: Chronic myelomonocytic leukaemia
     Dosage: 4 ML
     Dates: start: 20240117, end: 20240123

REACTIONS (2)
  - Haemoglobin decreased [Unknown]
  - Thrombocytopenia [Unknown]

NARRATIVE: CASE EVENT DATE: 20240123
